FAERS Safety Report 15286752 (Version 1)
Quarter: 2018Q3

REPORT INFORMATION
  Report Type: Spontaneous
  Country: US (occurrence: US)
  Receive Date: 20180816
  Receipt Date: 20180816
  Transmission Date: 20181010
  Serious: No
  Sender: FDA-Public Use
  Company Number: US-AMGEN-USASP2018108824

PATIENT
  Age: 59 Year
  Sex: Female

DRUGS (12)
  1. PARSABIV [Suspect]
     Active Substance: ETELCALCETIDE HYDROCHLORIDE
     Dosage: 10 MG (5 MG DOSE TWO TIMES), UNK
     Route: 065
     Dates: start: 20180806
  2. ASPIRIN. [Concomitant]
     Active Substance: ASPIRIN
     Dosage: 325 MG, UNK
  3. CALCIUM ACETATE. [Concomitant]
     Active Substance: CALCIUM ACETATE
  4. LISINOPRIL. [Concomitant]
     Active Substance: LISINOPRIL
  5. RENVELA [Concomitant]
     Active Substance: SEVELAMER CARBONATE
  6. METOPROLOL. [Concomitant]
     Active Substance: METOPROLOL
  7. AMLODIPIN [Concomitant]
     Active Substance: AMLODIPINE BESYLATE
  8. LASIX [Concomitant]
     Active Substance: FUROSEMIDE
  9. PARACITOL [Concomitant]
  10. PARSABIV [Suspect]
     Active Substance: ETELCALCETIDE HYDROCHLORIDE
     Indication: HYPERPARATHYROIDISM SECONDARY
     Dosage: 5 MG, UNK
     Route: 065
  11. DIALYVITE [Concomitant]
     Active Substance: ASCORBIC ACID\BIOTIN\CALCIUM PANTOTHENATE\COBALAMIN\FOLIC ACID\NIACINAMIDE\PYRIDOXINE HYDROCHLORIDE\RIBOFLAVIN\THIAMINE MONONITRATE
  12. GLIMEPIRIDE. [Concomitant]
     Active Substance: GLIMEPIRIDE

REACTIONS (1)
  - Extra dose administered [Unknown]
